FAERS Safety Report 8343562-4 (Version None)
Quarter: 2012Q2

REPORT INFORMATION
  Report Type: 
  Country: None (occurrence: None)
  Receive Date: 20120508
  Receipt Date: 20100608
  Transmission Date: 20120825
  Serious: No
  Sender: FDA-Public Use
  Company Number: US-TEVA-2010003123

PATIENT
  Sex: Male
  Weight: 74.91 kg

DRUGS (12)
  1. NEURONTIN [Concomitant]
  2. COMAPZINE [Concomitant]
  3. DILTIAZEM [Concomitant]
  4. NEXIUM [Concomitant]
  5. DEXAMETHASONE [Concomitant]
  6. TREANDA [Suspect]
     Indication: NON-HODGKIN'S LYMPHOMA
  7. ALOXI [Concomitant]
  8. TREANDA [Suspect]
     Indication: MANTLE CELL LYMPHOMA
     Route: 042
     Dates: start: 20100607, end: 20100608
  9. GUIATUSS AC [Concomitant]
  10. VICODIN ES [Concomitant]
  11. RITUXAN [Concomitant]
     Dates: start: 20100608
  12. PERCOCET [Concomitant]

REACTIONS (1)
  - INFUSION SITE EXTRAVASATION [None]
